FAERS Safety Report 9660263 (Version 1)
Quarter: 2013Q4

REPORT INFORMATION
  Report Type: Spontaneous
  Country: US (occurrence: US)
  Receive Date: 20131031
  Receipt Date: 20131031
  Transmission Date: 20140711
  Serious: No
  Sender: FDA-Public Use
  Company Number: US-BAYER-2013-132683

PATIENT
  Age: 69 Year
  Sex: Female
  Weight: 63.49 kg

DRUGS (3)
  1. ALEVE CAPLET [Suspect]
     Indication: PAIN
     Dosage: 1 DF, PRN
     Route: 048
     Dates: start: 2009, end: 20131024
  2. ALEVE CAPLET [Suspect]
     Indication: PAIN
     Dosage: 4 DF, QD
     Route: 048
     Dates: start: 20131024, end: 20131026
  3. ALEVE CAPLET [Suspect]
     Indication: PAIN
     Dosage: 2 DF, QD
     Route: 048
     Dates: start: 20131026

REACTIONS (1)
  - Extra dose administered [None]
